FAERS Safety Report 9106562 (Version 1)
Quarter: 2013Q1

REPORT INFORMATION
  Report Type: Spontaneous
  Country: CO (occurrence: CO)
  Receive Date: 20130222
  Receipt Date: 20130222
  Transmission Date: 20140127
  Serious: Yes (Other)
  Sender: FDA-Public Use
  Company Number: CO-AMGEN-COLSP2013012342

PATIENT
  Age: 53 Year
  Sex: Female

DRUGS (9)
  1. ENBREL [Suspect]
     Indication: RHEUMATOID ARTHRITIS
     Dosage: 25 MG, WEEKLY
     Route: 058
     Dates: start: 2009, end: 2010
  2. ENBREL [Suspect]
     Dosage: 50 MG, WEEKLY
     Route: 058
     Dates: start: 2010, end: 2011
  3. ENBREL [Suspect]
     Dosage: 50 MG, QWK
     Route: 058
     Dates: start: 2011
  4. CALCIUM [Concomitant]
     Indication: OSTEOPOROSIS
     Dosage: 500 MG, 1X/DAY
     Route: 048
     Dates: start: 2009
  5. ACETAMINOPHEN [Concomitant]
     Dosage: UNK
     Route: 065
  6. ALENDRONIC ACID [Concomitant]
     Indication: OSTEOPOROSIS
     Dosage: 50 MG, 1X/DAY
     Route: 048
     Dates: start: 2010
  7. ALPRAZOLAM [Concomitant]
     Indication: DEPRESSION
     Dosage: 0.25 MG, 1X/DAY
     Route: 048
     Dates: start: 2009
  8. CLONAZEPAM [Concomitant]
     Indication: SLEEP DISORDER
     Dosage: 2 MG, 1X/DAY AT NIGHT
     Route: 048
     Dates: start: 20130125
  9. IMURAN                             /00001501/ [Concomitant]
     Indication: RHEUMATOID ARTHRITIS
     Dosage: 50 MG, 1X/DAY
     Route: 048
     Dates: start: 2011

REACTIONS (7)
  - Liver injury [Unknown]
  - Osteoporosis [Not Recovered/Not Resolved]
  - Gait disturbance [Unknown]
  - Inflammation [Recovered/Resolved]
  - Swelling [Unknown]
  - Activities of daily living impaired [Unknown]
  - Hepatitis A [Unknown]
